FAERS Safety Report 4578743-9 (Version None)
Quarter: 2005Q1

REPORT INFORMATION
  Report Type: 
  Country: None (occurrence: None)
  Receive Date: 20050211
  Receipt Date: 20050203
  Transmission Date: 20050727
  Serious: Yes (Other)
  Sender: FDA-Public Use
  Company Number: NL-GLAXOSMITHKLINE-B0370916A

PATIENT
  Age: 68 Year
  Sex: Male

DRUGS (2)
  1. AMOXICILLIN AND CLAVULANATE POTASSIUM [Suspect]
     Dosage: 1TAB THREE TIMES PER DAY
     Dates: start: 20041001
  2. RESONIUM [Concomitant]

REACTIONS (3)
  - CONDITION AGGRAVATED [None]
  - NEUROPATHY [None]
  - UNEVALUABLE EVENT [None]
